FAERS Safety Report 17637850 (Version 1)
Quarter: 2020Q2

REPORT INFORMATION
  Report Type: Spontaneous
  Country: NL (occurrence: NL)
  Receive Date: 20200407
  Receipt Date: 20200407
  Transmission Date: 20200713
  Serious: Yes (Other)
  Sender: FDA-Public Use
  Company Number: NL-PFIZER INC-2020138927

PATIENT
  Age: 24 Year
  Sex: Male
  Weight: 90 kg

DRUGS (1)
  1. VENLAFAXINE HCL [Suspect]
     Active Substance: VENLAFAXINE HYDROCHLORIDE
     Indication: ANXIETY
     Dosage: 1
     Dates: start: 201910

REACTIONS (6)
  - Diarrhoea [Unknown]
  - Loss of consciousness [Recovered/Resolved]
  - Withdrawal syndrome [Not Recovered/Not Resolved]
  - Nausea [Unknown]
  - Paraesthesia [Not Recovered/Not Resolved]
  - Dizziness [Recovered/Resolved]

NARRATIVE: CASE EVENT DATE: 20200308
